FAERS Safety Report 8290316-3 (Version None)
Quarter: 2012Q2

REPORT INFORMATION
  Report Type: 
  Country: None (occurrence: None)
  Receive Date: 20120417
  Receipt Date: 20120403
  Transmission Date: 20120825
  Serious: Yes (Death, Hospitalization)
  Sender: FDA-Public Use
  Company Number: PHHO2010BR03745

PATIENT
  Sex: Male
  Weight: 70.4 kg

DRUGS (1)
  1. EVEROLIMUS [Suspect]
     Indication: LIVER TRANSPLANT
     Dosage: 4 MG, UNK
     Route: 048
     Dates: start: 20090908, end: 20100409

REACTIONS (17)
  - HYPOTENSION [None]
  - LUNG INFECTION [None]
  - LUNG INFILTRATION [None]
  - INFLAMMATION [None]
  - FATIGUE [None]
  - CHILLS [None]
  - ASTHENIA [None]
  - INTERSTITIAL LUNG DISEASE [None]
  - SHOCK [None]
  - PNEUMONIA [None]
  - PYREXIA [None]
  - TUBERCULOSIS [None]
  - TRAUMATIC LUNG INJURY [None]
  - CARDIO-RESPIRATORY ARREST [None]
  - DYSPNOEA [None]
  - RESPIRATORY DISTRESS [None]
  - RESPIRATORY FAILURE [None]
